FAERS Safety Report 16334233 (Version 1)
Quarter: 2019Q2

REPORT INFORMATION
  Report Type: Spontaneous
  Country: CN (occurrence: CN)
  Receive Date: 20190520
  Receipt Date: 20190520
  Transmission Date: 20190711
  Serious: Yes (Other)
  Sender: FDA-Public Use
  Company Number: CN-PFIZER INC-2019208484

PATIENT

DRUGS (1)
  1. ZYVOX [Suspect]
     Active Substance: LINEZOLID
     Indication: STREPTOCOCCAL INFECTION
     Dosage: UNK

REACTIONS (3)
  - Lactic acidosis [Unknown]
  - Erysipelas [Unknown]
  - Blood lactic acid increased [Unknown]
